FAERS Safety Report 4415424-6 (Version None)
Quarter: 2004Q2

REPORT INFORMATION
  Report Type: 
  Country: None (occurrence: None)
  Receive Date: 20040630
  Receipt Date: 20031002
  Transmission Date: 20050107
  Serious: Yes (Other)
  Sender: FDA-Public Use
  Company Number: 2003110476

PATIENT

DRUGS (2)
  1. ZOLOFT [Suspect]
     Indication: ILL-DEFINED DISORDER
     Dosage: 50 MG
  2. ALL OTHER THERAPEUTIC PRODUCTS (ALL OTHER THERAPEUTIC PRODUCTS) [Suspect]
     Indication: ILL-DEFINED DISORDER

REACTIONS (1)
  - CONVULSION [None]
